FAERS Safety Report 5646893-1 (Version None)
Quarter: 2008Q1

REPORT INFORMATION
  Report Type: 
  Country: None (occurrence: None)
  Receive Date: 20080228
  Receipt Date: 20080221
  Transmission Date: 20080703
  Serious: Yes (Death, Hospitalization)
  Sender: FDA-Public Use
  Company Number: 056-C5013-08021417

PATIENT
  Age: 81 Year
  Sex: Male
  Weight: 71 kg

DRUGS (9)
  1. CC-5013 (LENALIDOMIDE) (CAPSULES) [Suspect]
     Indication: MYELODYSPLASTIC SYNDROME
     Dosage: 10 MG, 1 IN 1 D, ORAL : 5 MG, 1 IN 1 D, ORAL
     Route: 048
     Dates: start: 20070409, end: 20070501
  2. CC-5013 (LENALIDOMIDE) (CAPSULES) [Suspect]
     Indication: MYELODYSPLASTIC SYNDROME
     Dosage: 10 MG, 1 IN 1 D, ORAL : 5 MG, 1 IN 1 D, ORAL
     Route: 048
     Dates: start: 20070511
  3. TRANSFUSION (RED BLOOD CELLS) [Concomitant]
  4. PANTOPRAZOLE SODIUM [Concomitant]
  5. PREVISCAN (FLUINDIONE) [Concomitant]
  6. DIGOXIN [Concomitant]
  7. LAMALINE (LAMALINE) [Concomitant]
  8. FORLAX (MACROGOL) [Concomitant]
  9. XALATAN [Concomitant]

REACTIONS (12)
  - ANXIETY [None]
  - ASTHENIA [None]
  - DRUG EFFECT DECREASED [None]
  - DYSPNOEA EXERTIONAL [None]
  - ESCHERICHIA INFECTION [None]
  - MYELODYSPLASTIC SYNDROME [None]
  - NEUTROPENIA [None]
  - ORAL INTAKE REDUCED [None]
  - PYREXIA [None]
  - REFUSAL OF TREATMENT BY PATIENT [None]
  - SCAB [None]
  - THROMBOCYTOPENIA [None]
